FAERS Safety Report 5635731-9 (Version None)
Quarter: 2008Q1

REPORT INFORMATION
  Report Type: 
  Country: None (occurrence: None)
  Receive Date: 20080220
  Receipt Date: 20080207
  Transmission Date: 20080703
  Serious: Yes (Life-Threatening)
  Sender: FDA-Public Use
  Company Number: FABR-1000081

PATIENT
  Age: 45 Year
  Sex: Male

DRUGS (2)
  1. FABRAZYME [Suspect]
     Indication: FABRY'S DISEASE
     Dosage: 1 MG/KG, Q2W, INTRAVENOUS
     Route: 042
  2. IMMUNOSUPPRESSANT DRUGS (NOT OTHERWISE SPECIFIED) [Concomitant]

REACTIONS (4)
  - ANAEMIA [None]
  - LYMPHOMA [None]
  - PYREXIA [None]
  - WEIGHT DECREASED [None]
